FAERS Safety Report 15401455 (Version 2)
Quarter: 2019Q1

REPORT INFORMATION
  Report Type: Spontaneous
  Country: FR (occurrence: FR)
  Receive Date: 20180919
  Receipt Date: 20190316
  Transmission Date: 20190417
  Serious: Yes (Death, Hospitalization, Other)
  Sender: FDA-Public Use
  Company Number: FR-ACCORD-072310

PATIENT
  Age: 41 Year
  Sex: Female

DRUGS (6)
  1. BACLOFEN. [Suspect]
     Active Substance: BACLOFEN
     Indication: SUICIDE ATTEMPT
     Route: 048
  2. VALPROMIDE [Suspect]
     Active Substance: VALPROMIDE
     Dosage: UNK
     Route: 048
  3. ESCITALOPRAM [Suspect]
     Active Substance: ESCITALOPRAM OXALATE
     Route: 048
  4. BACLOFEN. [Suspect]
     Active Substance: BACLOFEN
     Dosage: UNK
     Route: 048
  5. PARACETAMOL [Suspect]
     Active Substance: ACETAMINOPHEN
     Route: 048
  6. DEXTROPROPOXYPHENE/DEXTROPROPOXYPHENE HYDROCHLORI/DEXTROPROPOXYPHENE NAPSILATE [Suspect]
     Active Substance: PROPOXYPHENE
     Dosage: UNK
     Route: 048

REACTIONS (6)
  - Unresponsive to stimuli [Fatal]
  - Toxicity to various agents [Fatal]
  - Completed suicide [None]
  - Poisoning deliberate [Fatal]
  - Suicide attempt [Fatal]
  - Intentional overdose [None]
